FAERS Safety Report 8588584-3 (Version None)
Quarter: 2012Q3

REPORT INFORMATION
  Report Type: 
  Country: None (occurrence: None)
  Receive Date: 20120813
  Receipt Date: 20120806
  Transmission Date: 20120928
  Serious: Yes (Other)
  Sender: FDA-Public Use
  Company Number: CA-JNJFOC-20111201336

PATIENT
  Sex: Female
  Weight: 58 kg

DRUGS (6)
  1. REMICADE [Suspect]
     Indication: CROHN'S DISEASE
     Route: 042
     Dates: start: 20120622, end: 20120622
  2. REMICADE [Suspect]
     Route: 042
     Dates: start: 20090101
  3. COLESTID [Concomitant]
     Route: 065
  4. REMICADE [Suspect]
     Route: 042
     Dates: start: 20090201
  5. VITAMIN B-12 [Concomitant]
     Route: 058
  6. ANTI NAUSEA MEDICATION [Concomitant]
     Route: 065

REACTIONS (3)
  - CROHN'S DISEASE [None]
  - SINUSITIS [None]
  - MATERNAL EXPOSURE DURING PREGNANCY [None]
